FAERS Safety Report 6363684-7 (Version None)
Quarter: 2009Q3

REPORT INFORMATION
  Report Type: 
  Country: None (occurrence: None)
  Receive Date: 20090919
  Receipt Date: 20090706
  Transmission Date: 20100115
  Serious: No
  Sender: FDA-Public Use
  Company Number: US-ABBOTT-09P-163-0583713-00

PATIENT
  Sex: Female
  Weight: 127.12 kg

DRUGS (9)
  1. HUMIRA [Suspect]
     Indication: CROHN'S DISEASE
     Dosage: 4 PENS
     Route: 058
     Dates: start: 20090628
  2. PHENERGAN [Concomitant]
     Indication: PRESYNCOPE
     Route: 048
  3. PHENERGAN [Concomitant]
     Indication: VOMITING
  4. PREVACID [Concomitant]
     Indication: PROPHYLAXIS AGAINST GASTROINTESTINAL ULCER
     Route: 048
  5. XANAX [Concomitant]
     Indication: INSOMNIA
     Dosage: AT BEDTIME
     Route: 048
  6. LORTAB [Concomitant]
     Indication: ABDOMINAL PAIN
     Route: 048
  7. LORTAB [Concomitant]
     Indication: CROHN'S DISEASE
  8. IBUPROFEN [Concomitant]
     Indication: CROHN'S DISEASE
     Route: 048
  9. IBUPROFEN [Concomitant]
     Indication: ABDOMINAL PAIN

REACTIONS (2)
  - INJECTION SITE PAIN [None]
  - NAUSEA [None]
